FAERS Safety Report 24195985 (Version 1)
Quarter: 2024Q3

REPORT INFORMATION
  Report Type: Spontaneous
  Country: US (occurrence: US)
  Receive Date: 20240809
  Receipt Date: 20240809
  Transmission Date: 20241016
  Serious: Yes (Other)
  Sender: SANOFI AVENTIS
  Company Number: US-SA-SAC20240806000582

PATIENT
  Age: 77 Year
  Sex: Female

DRUGS (2)
  1. SARCLISA [Suspect]
     Active Substance: ISATUXIMAB-IRFC
     Indication: Plasma cell myeloma
     Dosage: 500 MG ON DAYS 1 AND 15 OF A 28 DAY CYCLE
     Route: 042
     Dates: start: 202405
  2. POMALYST [Concomitant]
     Active Substance: POMALIDOMIDE
     Dosage: TAKE 1 CAPSULE 1 TIME A DAY FOR 21 DAYS ON AND 7 DAYS OFF

REACTIONS (2)
  - Urinary tract infection [Unknown]
  - Haemoglobin decreased [Unknown]
